FAERS Safety Report 15389149 (Version 1)
Quarter: 2018Q3

REPORT INFORMATION
  Report Type: Spontaneous
  Country: IR (occurrence: IR)
  Receive Date: 20180917
  Receipt Date: 20180917
  Transmission Date: 20181010
  Serious: Yes (Other)
  Sender: FDA-Public Use
  Company Number: IR-SUN PHARMACEUTICAL INDUSTRIES LTD-2018R1-184473

PATIENT
  Age: 65 Year
  Sex: Female

DRUGS (1)
  1. METHYLPHENIDATE. [Suspect]
     Active Substance: METHYLPHENIDATE
     Indication: ATTENTION DEFICIT/HYPERACTIVITY DISORDER
     Dosage: (3 TO 4 TABLETS PER DAY), DAILY
     Route: 065

REACTIONS (2)
  - Drug administration error [Recovering/Resolving]
  - Substance-induced psychotic disorder [Recovering/Resolving]
